FAERS Safety Report 4512892-6 (Version None)
Quarter: 2004Q4

REPORT INFORMATION
  Report Type: 
  Country: None (occurrence: None)
  Receive Date: 20041124
  Receipt Date: 20041124
  Transmission Date: 20050328
  Serious: Yes (Hospitalization)
  Sender: FDA-Public Use
  Company Number: None

PATIENT
  Age: 60 Year
  Sex: Male
  Weight: 76.2043 kg

DRUGS (1)
  1. OXYCONTIN [Suspect]
     Indication: PELVIC PAIN
     Dosage: 10 MG Q 12 HRS PO
     Route: 048
     Dates: start: 20041119

REACTIONS (2)
  - AMNESIA [None]
  - CONFUSIONAL STATE [None]
